FAERS Safety Report 19397922 (Version 1)
Quarter: 2021Q2

REPORT INFORMATION
  Report Type: Spontaneous
  Country: US (occurrence: US)
  Receive Date: 20210609
  Receipt Date: 20210609
  Transmission Date: 20210717
  Serious: Yes (Other)
  Sender: FDA-Public Use
  Company Number: None

PATIENT
  Age: 65 Year
  Sex: Male

DRUGS (11)
  1. SPIRONOLACTONE. [Concomitant]
     Active Substance: SPIRONOLACTONE
  2. METOLAZONE. [Concomitant]
     Active Substance: METOLAZONE
  3. HYDRALAZINE [Concomitant]
     Active Substance: HYDRALAZINE HYDROCHLORIDE
  4. MIRTAZEPINE [Concomitant]
     Active Substance: MIRTAZAPINE
  5. ROPINIROLE. [Concomitant]
     Active Substance: ROPINIROLE
  6. FUROSEMIDE. [Concomitant]
     Active Substance: FUROSEMIDE
  7. CARBIDOPA/LEVODOPA [Concomitant]
     Active Substance: CARBIDOPA\LEVODOPA
  8. FINASTERIDE. [Concomitant]
     Active Substance: FINASTERIDE
  9. NOURIANZ [Suspect]
     Active Substance: ISTRADEFYLLINE
     Indication: PARKINSON^S DISEASE
     Route: 048
     Dates: start: 20210312
  10. IBUPROFEN. [Concomitant]
     Active Substance: IBUPROFEN
  11. CARVEDILOL. [Concomitant]
     Active Substance: CARVEDILOL

REACTIONS (1)
  - Hypotension [None]

NARRATIVE: CASE EVENT DATE: 20210608
